FAERS Safety Report 6728340-1 (Version None)
Quarter: 2010Q2

REPORT INFORMATION
  Report Type: 
  Country: None (occurrence: None)
  Receive Date: 20100517
  Receipt Date: 20100406
  Transmission Date: 20101027
  Serious: Yes (Death, Life-Threatening, Hospitalization, Other)
  Sender: FDA-Public Use
  Company Number: US-BAXTER-2009BH018187

PATIENT
  Age: 26 Year
  Sex: Male
  Weight: 64 kg

DRUGS (53)
  1. HEPARIN SODIUM INJECTION [Suspect]
     Indication: ENDOCARDITIS
     Route: 041
     Dates: start: 20071101, end: 20071101
  2. HEPARIN SODIUM INJECTION [Suspect]
     Indication: AORTIC VALVE REPLACEMENT
     Route: 041
     Dates: start: 20071101, end: 20071101
  3. HEPARIN SODIUM INJECTION [Suspect]
     Indication: CORONARY ARTERY BYPASS
     Route: 041
     Dates: start: 20071101, end: 20071101
  4. HEPARIN SODIUM INJECTION [Suspect]
     Indication: MITRAL VALVE REPAIR
     Route: 041
     Dates: start: 20071101, end: 20071101
  5. HEPARIN SODIUM INJECTION [Suspect]
     Indication: AORTIC SURGERY
     Route: 041
     Dates: start: 20071101, end: 20071101
  6. HEPARIN SODIUM INJECTION [Suspect]
     Indication: ARTERIAL CATHETERISATION
     Route: 041
     Dates: start: 20071101, end: 20071101
  7. HEPARIN SODIUM INJECTION [Suspect]
     Indication: ANTICOAGULANT THERAPY
     Route: 041
     Dates: start: 20071101, end: 20071101
  8. HEPARIN SODIUM INJECTION [Suspect]
     Indication: INTRAVENOUS CATHETER MANAGEMENT
     Route: 041
     Dates: start: 20071101, end: 20071101
  9. HEPARIN SODIUM INJECTION [Suspect]
     Route: 058
     Dates: start: 20071203, end: 20071206
  10. HEPARIN SODIUM INJECTION [Suspect]
     Route: 058
     Dates: start: 20071203, end: 20071206
  11. HEPARIN SODIUM INJECTION [Suspect]
     Route: 058
     Dates: start: 20071203, end: 20071206
  12. HEPARIN SODIUM INJECTION [Suspect]
     Route: 058
     Dates: start: 20071203, end: 20071206
  13. HEPARIN SODIUM INJECTION [Suspect]
     Route: 058
     Dates: start: 20071203, end: 20071206
  14. HEPARIN SODIUM INJECTION [Suspect]
     Route: 058
     Dates: start: 20071203, end: 20071206
  15. HEPARIN SODIUM INJECTION [Suspect]
     Route: 058
     Dates: start: 20071203, end: 20071206
  16. HEPARIN SODIUM INJECTION [Suspect]
     Route: 058
     Dates: start: 20071203, end: 20071206
  17. HEPARIN SODIUM INJECTION [Suspect]
     Route: 042
     Dates: start: 20071203, end: 20071206
  18. HEPARIN SODIUM INJECTION [Suspect]
     Route: 042
     Dates: start: 20071203, end: 20071206
  19. HEPARIN SODIUM INJECTION [Suspect]
     Route: 042
     Dates: start: 20071203, end: 20071206
  20. HEPARIN SODIUM INJECTION [Suspect]
     Route: 042
     Dates: start: 20071203, end: 20071206
  21. HEPARIN SODIUM INJECTION [Suspect]
     Route: 042
     Dates: start: 20071203, end: 20071206
  22. HEPARIN SODIUM INJECTION [Suspect]
     Route: 042
     Dates: start: 20071203, end: 20071206
  23. HEPARIN SODIUM INJECTION [Suspect]
     Route: 042
     Dates: start: 20071203, end: 20071206
  24. HEPARIN SODIUM INJECTION [Suspect]
     Route: 042
     Dates: start: 20071203, end: 20071206
  25. HEPARIN SODIUM 1,000 UNITS AND SODIUM CHLORIDE 0.9% [Suspect]
     Indication: ENDOCARDITIS
     Route: 041
     Dates: start: 20071203, end: 20071206
  26. HEPARIN SODIUM 1,000 UNITS AND SODIUM CHLORIDE 0.9% [Suspect]
     Indication: AORTIC VALVE REPLACEMENT
     Route: 041
     Dates: start: 20071203, end: 20071206
  27. HEPARIN SODIUM 1,000 UNITS AND SODIUM CHLORIDE 0.9% [Suspect]
     Indication: CORONARY ARTERY BYPASS
     Route: 041
     Dates: start: 20071203, end: 20071206
  28. HEPARIN SODIUM 1,000 UNITS AND SODIUM CHLORIDE 0.9% [Suspect]
     Indication: MITRAL VALVE REPAIR
     Route: 041
     Dates: start: 20071203, end: 20071206
  29. HEPARIN SODIUM 1,000 UNITS AND SODIUM CHLORIDE 0.9% [Suspect]
     Indication: AORTIC SURGERY
     Route: 041
     Dates: start: 20071203, end: 20071206
  30. HEPARIN SODIUM 1,000 UNITS AND SODIUM CHLORIDE 0.9% [Suspect]
     Indication: ARTERIAL CATHETERISATION
     Route: 041
     Dates: start: 20071203, end: 20071206
  31. HEPARIN SODIUM 1,000 UNITS AND SODIUM CHLORIDE 0.9% [Suspect]
     Indication: ANTICOAGULANT THERAPY
     Route: 041
     Dates: start: 20071203, end: 20071206
  32. HEPARIN SODIUM 1,000 UNITS AND SODIUM CHLORIDE 0.9% [Suspect]
     Indication: INTRAVENOUS CATHETER MANAGEMENT
     Route: 041
     Dates: start: 20071203, end: 20071206
  33. ADVIL [Concomitant]
     Indication: DRUG USE FOR UNKNOWN INDICATION
     Route: 065
  34. CEFTRIAXONE [Concomitant]
     Indication: DRUG USE FOR UNKNOWN INDICATION
     Route: 065
  35. DOCUSATE SODIUM [Concomitant]
     Indication: DRUG USE FOR UNKNOWN INDICATION
     Route: 065
  36. MAGNESIUM SULFATE [Concomitant]
     Indication: DRUG USE FOR UNKNOWN INDICATION
     Route: 065
  37. PANTOPRAZOLE SODIUM [Concomitant]
     Indication: DRUG USE FOR UNKNOWN INDICATION
     Route: 065
  38. POTASSIUM CHLORIDE [Concomitant]
     Indication: DRUG USE FOR UNKNOWN INDICATION
     Route: 065
  39. SALINE [Concomitant]
     Indication: DRUG USE FOR UNKNOWN INDICATION
     Route: 065
  40. VANCOMYCIN [Concomitant]
     Indication: DRUG USE FOR UNKNOWN INDICATION
     Route: 065
  41. ASPIRIN [Concomitant]
     Indication: DRUG USE FOR UNKNOWN INDICATION
     Route: 065
  42. CHLORHEXIDINE GLUCONATE [Concomitant]
     Indication: DRUG USE FOR UNKNOWN INDICATION
     Route: 065
  43. FAMOTIDINE [Concomitant]
     Indication: DRUG USE FOR UNKNOWN INDICATION
     Route: 065
  44. IBUPROFEN [Concomitant]
     Indication: DRUG USE FOR UNKNOWN INDICATION
     Route: 065
  45. ATIVAN [Concomitant]
     Indication: DRUG USE FOR UNKNOWN INDICATION
     Route: 065
  46. FACTOR VII [Concomitant]
     Indication: DRUG USE FOR UNKNOWN INDICATION
     Route: 065
  47. LASIX [Concomitant]
     Indication: DRUG USE FOR UNKNOWN INDICATION
     Route: 065
  48. ACETAMINOPHEN [Concomitant]
     Indication: DRUG USE FOR UNKNOWN INDICATION
     Route: 065
  49. MAALOX PLUS                             /CAN/ [Concomitant]
     Indication: DRUG USE FOR UNKNOWN INDICATION
     Route: 065
  50. BISACODYL [Concomitant]
     Indication: DRUG USE FOR UNKNOWN INDICATION
     Route: 065
  51. DIPHENHYDRAMINE [Concomitant]
     Indication: DRUG USE FOR UNKNOWN INDICATION
     Route: 065
  52. ONDANSETRON [Concomitant]
     Indication: DRUG USE FOR UNKNOWN INDICATION
     Route: 065
  53. FENTANYL [Concomitant]
     Indication: DRUG USE FOR UNKNOWN INDICATION
     Route: 065

REACTIONS (14)
  - ACUTE LUNG INJURY [None]
  - CARDIAC ARREST [None]
  - CONVULSION [None]
  - DISSEMINATED INTRAVASCULAR COAGULATION [None]
  - EMBOLISM [None]
  - HEPARIN-INDUCED THROMBOCYTOPENIA [None]
  - HYPERGLYCAEMIA [None]
  - HYPOTENSION [None]
  - ISCHAEMIC HEPATITIS [None]
  - LUNG INFILTRATION [None]
  - PYREXIA [None]
  - RENAL FAILURE ACUTE [None]
  - SUBACUTE ENDOCARDITIS [None]
  - URINARY TRACT INFECTION FUNGAL [None]
